FAERS Safety Report 9023392 (Version 4)
Quarter: 2013Q2

REPORT INFORMATION
  Report Type: Spontaneous
  Country: US (occurrence: US)
  Receive Date: 20130121
  Receipt Date: 20130411
  Transmission Date: 20140414
  Serious: Yes (Hospitalization)
  Sender: FDA-Public Use
  Company Number: US-GILEAD-2013-0068079

PATIENT
  Sex: Male

DRUGS (2)
  1. LETAIRIS [Suspect]
     Indication: PULMONARY ARTERIAL HYPERTENSION
     Dosage: 10 MG, QD
     Route: 048
     Dates: start: 20121130
  2. LETAIRIS [Suspect]
     Indication: SPLENECTOMY

REACTIONS (5)
  - Pneumonia [Unknown]
  - Unevaluable event [Unknown]
  - Cardiac failure congestive [Unknown]
  - Blood glucose decreased [Unknown]
  - Dyspnoea [Unknown]
